FAERS Safety Report 5723168-3 (Version None)
Quarter: 2008Q2

REPORT INFORMATION
  Report Type: 
  Country: None (occurrence: None)
  Receive Date: 20080430
  Receipt Date: 20080421
  Transmission Date: 20081010
  Serious: Yes (Other)
  Sender: FDA-Public Use
  Company Number: FR-ELI_LILLY_AND_COMPANY-FR200804005957

PATIENT
  Age: 65 Year
  Sex: Female

DRUGS (1)
  1. FORTEO [Suspect]
     Indication: OSTEOPOROSIS
     Dosage: 20 UG, DAILY (1/D)
     Route: 058
     Dates: start: 20071004

REACTIONS (8)
  - ABDOMINAL PAIN UPPER [None]
  - DRY MOUTH [None]
  - FATIGUE [None]
  - HOT FLUSH [None]
  - HYPERSENSITIVITY [None]
  - INSOMNIA [None]
  - JAUNDICE [None]
  - SNEEZING [None]
